APPROVED DRUG PRODUCT: GLYBURIDE (MICRONIZED)
Active Ingredient: GLYBURIDE
Strength: 3MG
Dosage Form/Route: TABLET;ORAL
Application: A075174 | Product #002
Applicant: CHARTWELL RX SCIENCES LLC
Approved: Jun 22, 1998 | RLD: No | RS: No | Type: DISCN